FAERS Safety Report 18756219 (Version 2)
Quarter: 2021Q1

REPORT INFORMATION
  Report Type: Report from Study
  Country: PL (occurrence: PL)
  Receive Date: 20210119
  Receipt Date: 20210119
  Transmission Date: 20210419
  Serious: Yes (Other)
  Sender: FDA-Public Use
  Company Number: PL-PFIZER INC-2021032958

PATIENT
  Age: 42 Month
  Sex: Female

DRUGS (3)
  1. CARBOPLATIN. [Suspect]
     Active Substance: CARBOPLATIN
     Indication: OVARIAN GERM CELL ENDODERMAL SINUS TUMOUR
     Dosage: 200 MG/M2, DAILY,  DAYS ?6 TO ?3
  2. MELPHALAN. [Suspect]
     Active Substance: MELPHALAN
     Indication: OVARIAN GERM CELL ENDODERMAL SINUS TUMOUR
     Dosage: 140 MG/M2, ON DAY ?1
  3. ETOPOSIDE. [Suspect]
     Active Substance: ETOPOSIDE
     Indication: OVARIAN GERM CELL ENDODERMAL SINUS TUMOUR
     Dosage: 200 MG/M2, DAILY,  ON DAYS ?6 TO ?3

REACTIONS (6)
  - Mucosal inflammation [Unknown]
  - Venoocclusive liver disease [Unknown]
  - Neutropenia [Unknown]
  - Pyrexia [Unknown]
  - Leukopenia [Unknown]
  - Hypertransaminasaemia [Unknown]
